FAERS Safety Report 9456064 (Version 1)
Quarter: 2013Q3

REPORT INFORMATION
  Report Type: Spontaneous
  Country: US (occurrence: US)
  Receive Date: 20130813
  Receipt Date: 20130813
  Transmission Date: 20140515
  Serious: Yes (Other)
  Sender: FDA-Public Use
  Company Number: US-AMGEN-USASP2013055658

PATIENT
  Age: 64 Year
  Sex: Female

DRUGS (1)
  1. ENBREL [Suspect]
     Indication: RHEUMATOID ARTHRITIS
     Dosage: 50 MG, QWK
     Route: 065
     Dates: start: 1999

REACTIONS (6)
  - Hip arthroplasty [Unknown]
  - Lyme disease [Unknown]
  - Histoplasmosis [Unknown]
  - Asthma [Unknown]
  - Herpes zoster [Unknown]
  - Injection site pain [Unknown]
